FAERS Safety Report 20455775 (Version 1)
Quarter: 2022Q1

REPORT INFORMATION
  Report Type: Spontaneous
  Country: US (occurrence: US)
  Receive Date: 20220210
  Receipt Date: 20220210
  Transmission Date: 20220424
  Serious: Yes (Death, Hospitalization, Other)
  Sender: FDA-Public Use
  Company Number: US-LUPIN PHARMACEUTICALS INC.-2022-01588

PATIENT
  Age: 73 Year
  Sex: Female

DRUGS (4)
  1. AMLODIPINE [Suspect]
     Active Substance: AMLODIPINE BESYLATE
     Indication: Product used for unknown indication
     Dosage: 40 DOSAGE FORM (10 MG TABLETS)
     Route: 048
  2. CALCIUM [Suspect]
     Active Substance: CALCIUM
     Indication: Toxicity to various agents
     Dosage: UNK (INFUSION)
     Route: 065
  3. INSULIN NOS [Suspect]
     Active Substance: INSULIN NOS
     Indication: Toxicity to various agents
     Dosage: UNK (HIGH DOSE)
     Route: 065
  4. FAT EMULSION NOS [Suspect]
     Active Substance: EGG PHOSPHOLIPIDS\SAFFLOWER OIL\SOYBEAN OIL
     Indication: Shock
     Dosage: UNK
     Route: 042

REACTIONS (17)
  - Multiple organ dysfunction syndrome [Fatal]
  - Acute kidney injury [Fatal]
  - Shock [Fatal]
  - Suicide attempt [Fatal]
  - Mental status changes [Fatal]
  - Agitation [Fatal]
  - Hypotension [Fatal]
  - Atrioventricular dissociation [Fatal]
  - Toxicity to various agents [Fatal]
  - Intentional overdose [Fatal]
  - Hyperkalaemia [Fatal]
  - Metabolic acidosis [Fatal]
  - Transaminases increased [Fatal]
  - Bradycardia [Fatal]
  - Blood lactic acid increased [Fatal]
  - Drug ineffective for unapproved indication [None]
  - Off label use [None]
